FAERS Safety Report 22917194 (Version 7)
Quarter: 2024Q1

REPORT INFORMATION
  Report Type: Other
  Country: US (occurrence: US)
  Receive Date: 20230907
  Receipt Date: 20240308
  Transmission Date: 20240410
  Serious: Yes (Hospitalization)
  Sender: FDA-Public Use
  Company Number: US-TRAVERE-2023TVT00332

PATIENT
  Age: 28 Year
  Sex: Male

DRUGS (8)
  1. FILSPARI [Suspect]
     Active Substance: SPARSENTAN
     Indication: IgA nephropathy
     Dosage: 200 MG 2 TABS / 400 MG
     Route: 048
  2. FILSPARI [Suspect]
     Active Substance: SPARSENTAN
     Indication: Chronic kidney disease
     Dosage: 400MG
     Route: 048
     Dates: start: 20230930
  3. FILSPARI [Suspect]
     Active Substance: SPARSENTAN
     Indication: Chronic kidney disease
  4. FILSPARI [Suspect]
     Active Substance: SPARSENTAN
     Indication: Haematuria
  5. FINASTERIDE [Concomitant]
     Active Substance: FINASTERIDE
  6. Rosvuastatin [Concomitant]
  7. COLCHICINE [Concomitant]
     Active Substance: COLCHICINE
  8. LOSARTAN [Concomitant]
     Active Substance: LOSARTAN

REACTIONS (9)
  - Pneumonia [Recovered/Resolved]
  - Diabetes mellitus [Unknown]
  - Sepsis [Unknown]
  - Acute respiratory failure [Unknown]
  - Acute kidney injury [Unknown]
  - Pyrexia [Unknown]
  - Chills [Unknown]
  - Pain [Unknown]
  - Contraindicated product administered [Unknown]

NARRATIVE: CASE EVENT DATE: 20230917
